FAERS Safety Report 4875263-9 (Version None)
Quarter: 2006Q1

REPORT INFORMATION
  Report Type: 
  Country: None (occurrence: None)
  Receive Date: 20060104
  Receipt Date: 20051222
  Transmission Date: 20060701
  Serious: Yes (Other)
  Sender: FDA-Public Use
  Company Number: 2005172375

PATIENT
  Sex: Female

DRUGS (1)
  1. ESTRADIOL [Suspect]
     Indication: ILL-DEFINED DISORDER
     Dosage: SINGLE DOSE (1 IN 1 D), TRANSDERMAL
     Route: 062
     Dates: start: 20051206, end: 20051206

REACTIONS (4)
  - APPLICATION SITE INFLAMMATION [None]
  - PHARYNGOLARYNGEAL PAIN [None]
  - SWOLLEN TONGUE [None]
  - URTICARIA GENERALISED [None]
